FAERS Safety Report 5243562-7 (Version None)
Quarter: 2007Q1

REPORT INFORMATION
  Report Type: 
  Country: None (occurrence: None)
  Receive Date: 20070222
  Receipt Date: 20070213
  Transmission Date: 20070707
  Serious: Yes (Death)
  Sender: FDA-Public Use
  Company Number: JP-SP-2007-00231

PATIENT
  Age: 82 Year
  Sex: Male

DRUGS (8)
  1. IMMUCYST [Suspect]
     Indication: BLADDER CANCER
     Dosage: WEEKLY DOSE: 27 MG
     Route: 043
     Dates: start: 20061227, end: 20070117
  2. IMMUCYST [Suspect]
     Dosage: WEEKLY DOSE: 27 MG
     Route: 043
     Dates: start: 20061227, end: 20070117
  3. TEPRENONE [Concomitant]
     Route: 048
     Dates: end: 20070118
  4. ETODOLAC [Concomitant]
     Route: 048
     Dates: end: 20070118
  5. ALFACALCIDOL [Concomitant]
     Route: 048
     Dates: end: 20070118
  6. DIFENIDOL HYDROCHLORIDE [Concomitant]
     Route: 048
     Dates: end: 20070118
  7. ENALAPRIL MALEATE [Concomitant]
     Route: 048
     Dates: end: 20070118
  8. SENNA EXTRACT [Concomitant]
     Route: 048
     Dates: end: 20070118

REACTIONS (6)
  - DEPRESSED LEVEL OF CONSCIOUSNESS [None]
  - DYSPNOEA [None]
  - INCORRECT DOSE ADMINISTERED [None]
  - RENAL FAILURE [None]
  - RESTLESSNESS [None]
  - RHABDOMYOLYSIS [None]
